FAERS Safety Report 21673566 (Version 1)
Quarter: 2022Q4

REPORT INFORMATION
  Report Type: Report from Study
  Country: US (occurrence: US)
  Receive Date: 20221202
  Receipt Date: 20221202
  Transmission Date: 20230113
  Serious: Yes (Other)
  Sender: FDA-Public Use
  Company Number: US-TAKEDA-2022TUS092746

PATIENT
  Age: 72 Year
  Sex: Female

DRUGS (16)
  1. TEDUGLUTIDE [Suspect]
     Active Substance: TEDUGLUTIDE
     Indication: Short-bowel syndrome
     Dosage: 3.14 MILLIGRAM, QD
     Route: 042
     Dates: start: 20190209, end: 20190209
  2. TEDUGLUTIDE [Suspect]
     Active Substance: TEDUGLUTIDE
     Indication: Short-bowel syndrome
     Dosage: 3.14 MILLIGRAM, QD
     Route: 042
     Dates: start: 20190209, end: 20190209
  3. TEDUGLUTIDE [Suspect]
     Active Substance: TEDUGLUTIDE
     Indication: Short-bowel syndrome
     Dosage: 3.14 MILLIGRAM, QD
     Route: 042
     Dates: start: 20190209, end: 20190209
  4. TEDUGLUTIDE [Suspect]
     Active Substance: TEDUGLUTIDE
     Indication: Short-bowel syndrome
     Dosage: 3.14 MILLIGRAM, QD
     Route: 042
     Dates: start: 20190209, end: 20190209
  5. TEDUGLUTIDE [Suspect]
     Active Substance: TEDUGLUTIDE
     Dosage: 3.14 MILLIGRAM, 4/WEEK
     Route: 042
     Dates: start: 20190910, end: 202003
  6. TEDUGLUTIDE [Suspect]
     Active Substance: TEDUGLUTIDE
     Dosage: 3.14 MILLIGRAM, 4/WEEK
     Route: 042
     Dates: start: 20190910, end: 202003
  7. TEDUGLUTIDE [Suspect]
     Active Substance: TEDUGLUTIDE
     Dosage: 3.14 MILLIGRAM, 4/WEEK
     Route: 042
     Dates: start: 20190910, end: 202003
  8. TEDUGLUTIDE [Suspect]
     Active Substance: TEDUGLUTIDE
     Dosage: 3.14 MILLIGRAM, 4/WEEK
     Route: 042
     Dates: start: 20190910, end: 202003
  9. TEDUGLUTIDE [Suspect]
     Active Substance: TEDUGLUTIDE
     Dosage: 3.14 MILLIGRAM, 4/WEEK
     Route: 042
     Dates: start: 20200501, end: 20210209
  10. TEDUGLUTIDE [Suspect]
     Active Substance: TEDUGLUTIDE
     Dosage: 3.14 MILLIGRAM, 4/WEEK
     Route: 042
     Dates: start: 20200501, end: 20210209
  11. TEDUGLUTIDE [Suspect]
     Active Substance: TEDUGLUTIDE
     Dosage: 3.14 MILLIGRAM, 4/WEEK
     Route: 042
     Dates: start: 20200501, end: 20210209
  12. TEDUGLUTIDE [Suspect]
     Active Substance: TEDUGLUTIDE
     Dosage: 3.14 MILLIGRAM, 4/WEEK
     Route: 042
     Dates: start: 20200501, end: 20210209
  13. ATIVAN [Concomitant]
     Active Substance: LORAZEPAM
     Dosage: 0.50 MILLIGRAM
     Route: 048
  14. NORVASC [Concomitant]
     Active Substance: AMLODIPINE BESYLATE
     Indication: Hypertension
     Dosage: 5.00 MILLIGRAM, QD
     Route: 048
     Dates: start: 20220613
  15. METRONIDAZOLE [Concomitant]
     Active Substance: METRONIDAZOLE
     Indication: Bacteraemia
     Dosage: UNK
     Route: 048
     Dates: start: 20220128, end: 20220216
  16. CEFEPIME [Concomitant]
     Active Substance: CEFEPIME HYDROCHLORIDE
     Indication: Bacteraemia
     Dosage: UNK
     Route: 042
     Dates: start: 20220128, end: 20220131

REACTIONS (1)
  - Macular degeneration [Not Recovered/Not Resolved]

NARRATIVE: CASE EVENT DATE: 20221101
